FAERS Safety Report 19506000 (Version 1)
Quarter: 2021Q3

REPORT INFORMATION
  Report Type: Spontaneous
  Country: GB (occurrence: GB)
  Receive Date: 20210708
  Receipt Date: 20210708
  Transmission Date: 20211014
  Serious: Yes (Other)
  Sender: FDA-Public Use
  Company Number: GB-SUN PHARMACEUTICAL INDUSTRIES LTD-2021RR-303391

PATIENT
  Age: 29 Year
  Sex: Female

DRUGS (1)
  1. SERTRALINE [Suspect]
     Active Substance: SERTRALINE HYDROCHLORIDE
     Indication: ILL-DEFINED DISORDER
     Dosage: UNK, I HAVE BEEN TAKING BETWEEN 100 ? 200 MG IN THE YEARS I^VE BEEN TAKING THEM
     Route: 048
     Dates: start: 2016

REACTIONS (1)
  - Adverse drug reaction [Not Recovered/Not Resolved]
